FAERS Safety Report 20485704 (Version 3)
Quarter: 2022Q4

REPORT INFORMATION
  Report Type: Spontaneous
  Country: US (occurrence: None)
  Receive Date: 20220217
  Receipt Date: 20221220
  Transmission Date: 20230113
  Serious: Yes (Other)
  Sender: FDA-Public Use
  Company Number: 2022A066386

PATIENT
  Age: 51 Year
  Sex: Female
  Weight: 104.3 kg

DRUGS (61)
  1. PRILOSEC [Suspect]
     Active Substance: OMEPRAZOLE MAGNESIUM
     Indication: Gastrooesophageal reflux disease
     Route: 048
     Dates: start: 2007, end: 2017
  2. PRILOSEC [Suspect]
     Active Substance: OMEPRAZOLE MAGNESIUM
     Indication: Gastrooesophageal reflux disease
     Route: 048
     Dates: start: 2007, end: 2017
  3. PRILOSEC [Suspect]
     Active Substance: OMEPRAZOLE MAGNESIUM
     Indication: Gastrooesophageal reflux disease
     Dosage: GENERIC
     Route: 065
     Dates: start: 2016, end: 2018
  4. PRILOSEC [Suspect]
     Active Substance: OMEPRAZOLE MAGNESIUM
     Indication: Gastrooesophageal reflux disease
     Dosage: GENERIC
     Route: 065
     Dates: start: 2016, end: 2018
  5. PRILOSEC OTC [Suspect]
     Active Substance: OMEPRAZOLE MAGNESIUM
     Indication: Gastrooesophageal reflux disease
     Route: 048
     Dates: start: 2017
  6. PRILOSEC OTC [Suspect]
     Active Substance: OMEPRAZOLE MAGNESIUM
     Indication: Gastrooesophageal reflux disease
     Route: 048
     Dates: start: 2017
  7. PROTONIX [Suspect]
     Active Substance: PANTOPRAZOLE SODIUM
     Indication: Gastrooesophageal reflux disease
     Dosage: GENERIC
     Route: 065
     Dates: start: 2007, end: 2017
  8. PROTONIX [Suspect]
     Active Substance: PANTOPRAZOLE SODIUM
     Indication: Gastrooesophageal reflux disease
     Dosage: GENERIC
     Route: 065
     Dates: start: 2007, end: 2017
  9. PROTONIX [Suspect]
     Active Substance: PANTOPRAZOLE SODIUM
     Indication: Gastrooesophageal reflux disease
     Dosage: GENERIC
     Route: 065
     Dates: start: 2011
  10. PROTONIX [Suspect]
     Active Substance: PANTOPRAZOLE SODIUM
     Indication: Gastrooesophageal reflux disease
     Dosage: GENERIC
     Route: 065
     Dates: start: 2011
  11. BUPIVACAINE HYDROCHLORIDE/LIDOCAINE HYDROCHLORIDE/KETOROLAC TROMETHAMI [Concomitant]
     Indication: Pain
     Dates: start: 2009
  12. LISINOPRIL [Concomitant]
     Active Substance: LISINOPRIL
     Indication: Hypertension
     Dates: start: 2009
  13. AZITHROMYCIN [Concomitant]
     Active Substance: AZITHROMYCIN
     Indication: Infection
     Dates: start: 2009
  14. TRAMADOL [Concomitant]
     Active Substance: TRAMADOL
     Indication: Pain
     Dates: start: 2010
  15. FUROSEMIDE [Concomitant]
     Active Substance: FUROSEMIDE
     Indication: Hypertension
     Dates: start: 2016, end: 2018
  16. CIPROFLOXACIN [Concomitant]
     Active Substance: CIPROFLOXACIN
     Indication: Infection
     Dates: start: 2016, end: 2018
  17. TAURINE/AMINOCAPROIC ACID/SULFAMETHOXAZOLE SODIUM/DIPOTASSIUM GLYCYRRH [Concomitant]
     Indication: Infection
     Dates: start: 2016, end: 2017
  18. HYDRALAZINE [Concomitant]
     Active Substance: HYDRALAZINE HYDROCHLORIDE
     Indication: Hypertension
     Dates: start: 2017
  19. BUMETANIDE [Concomitant]
     Active Substance: BUMETANIDE
     Indication: Hypertension
     Dates: start: 2021
  20. TYLENOL [Concomitant]
     Active Substance: ACETAMINOPHEN
     Indication: Pain
     Dosage: AS NEEDED
  21. CLINDAMYCIN [Concomitant]
     Active Substance: CLINDAMYCIN
  22. CYMBALTA [Concomitant]
     Active Substance: DULOXETINE HYDROCHLORIDE
  23. ATIVAN [Concomitant]
     Active Substance: LORAZEPAM
  24. BUPROPION [Concomitant]
     Active Substance: BUPROPION
  25. INDOMETHACIN [Concomitant]
     Active Substance: INDOMETHACIN
  26. HYDROXYZINE [Concomitant]
     Active Substance: HYDROXYZINE HYDROCHLORIDE
  27. ONDANSETRON [Concomitant]
     Active Substance: ONDANSETRON
  28. ZOFRAN [Concomitant]
     Active Substance: ONDANSETRON HYDROCHLORIDE
  29. DIPHENHYDRAMINE [Concomitant]
     Active Substance: DIPHENHYDRAMINE
  30. DICLOFENAC [Concomitant]
     Active Substance: DICLOFENAC
  31. DISULFIRAM [Concomitant]
     Active Substance: DISULFIRAM
  32. VISTARIL [Concomitant]
     Active Substance: HYDROXYZINE PAMOATE
  33. ACCUPRIL [Concomitant]
     Active Substance: QUINAPRIL HYDROCHLORIDE
  34. LOSARTAN [Concomitant]
     Active Substance: LOSARTAN
  35. VITAMIN B12 [Concomitant]
     Active Substance: CYANOCOBALAMIN
  36. PHENTERMINE [Concomitant]
     Active Substance: PHENTERMINE
  37. CYANOCOBALAMIN [Concomitant]
     Active Substance: CYANOCOBALAMIN
  38. AMLODIPINE [Concomitant]
     Active Substance: AMLODIPINE BESYLATE
  39. HYDROCODONE [Concomitant]
     Active Substance: HYDROCODONE
  40. LEVETIRACETAM [Concomitant]
     Active Substance: LEVETIRACETAM
  41. CELLCEPT [Concomitant]
     Active Substance: MYCOPHENOLATE MOFETIL
  42. PREDNISONE [Concomitant]
     Active Substance: PREDNISONE
  43. MIRTAZAPINE [Concomitant]
     Active Substance: MIRTAZAPINE
  44. POLYETHYLENE GLYCOL [Concomitant]
     Active Substance: POLYETHYLENE GLYCOL
  45. ALBUTEROL [Concomitant]
     Active Substance: ALBUTEROL
  46. FERROUS GLUCONATE [Concomitant]
     Active Substance: FERROUS GLUCONATE
  47. MAGNESIUM OXIDE [Concomitant]
     Active Substance: MAGNESIUM OXIDE
  48. VANCOMYCIN [Concomitant]
     Active Substance: VANCOMYCIN
  49. CATAPRES [Concomitant]
     Active Substance: CLONIDINE HYDROCHLORIDE
  50. ROXICODONE [Concomitant]
     Active Substance: OXYCODONE HYDROCHLORIDE
  51. LASIX [Concomitant]
     Active Substance: FUROSEMIDE
  52. PHOSLO [Concomitant]
     Active Substance: CALCIUM ACETATE
  53. CALCIUM ACETATE [Concomitant]
     Active Substance: CALCIUM ACETATE
  54. REMERON [Concomitant]
     Active Substance: MIRTAZAPINE
  55. MIDAZOLAM [Concomitant]
     Active Substance: MIDAZOLAM
  56. ENOXAPARIN [Concomitant]
     Active Substance: ENOXAPARIN
  57. SPIRONOLACTONE [Concomitant]
     Active Substance: SPIRONOLACTONE
  58. METOCLOPRAMIDE [Concomitant]
     Active Substance: METOCLOPRAMIDE
  59. NICOTINAMIDE/CALCIUM PANTOTHENATE/BIOTIN/MECOBALAMIN/(6S)-5-METHYLTETR [Concomitant]
  60. LYRICA [Concomitant]
     Active Substance: PREGABALIN
  61. XANAX [Concomitant]
     Active Substance: ALPRAZOLAM

REACTIONS (12)
  - Chronic kidney disease [Not Recovered/Not Resolved]
  - Acute kidney injury [Not Recovered/Not Resolved]
  - Renal failure [Unknown]
  - Renal tubular necrosis [Unknown]
  - Nephrogenic anaemia [Unknown]
  - Hyperphosphataemia [Unknown]
  - Hyponatraemia [Unknown]
  - Metabolic acidosis [Unknown]
  - Chronic kidney disease-mineral and bone disorder [Unknown]
  - IgA nephropathy [Unknown]
  - Proteinuria [Unknown]
  - Gastrooesophageal reflux disease [Not Recovered/Not Resolved]

NARRATIVE: CASE EVENT DATE: 20120101
